FAERS Safety Report 20967394 (Version 1)
Quarter: 2022Q2

REPORT INFORMATION
  Report Type: Spontaneous
  Country: US (occurrence: None)
  Receive Date: 20220616
  Receipt Date: 20220616
  Transmission Date: 20220721
  Serious: Yes (Hospitalization)
  Sender: FDA-Public Use
  Company Number: None

PATIENT
  Sex: Female

DRUGS (3)
  1. GEMCITABINE HYDROCHLORIDE [Suspect]
     Active Substance: GEMCITABINE HYDROCHLORIDE
     Dates: end: 20220407
  2. PACLITAXEL [Suspect]
     Active Substance: PACLITAXEL
     Dates: end: 20220407
  3. OXYCODONE [Concomitant]
     Active Substance: OXYCODONE

REACTIONS (12)
  - Constipation [None]
  - Abdominal pain lower [None]
  - Abdominal distension [None]
  - Abdominal discomfort [None]
  - Drug ineffective [None]
  - Hypophagia [None]
  - Nausea [None]
  - Diarrhoea [None]
  - Ascites [None]
  - Metastases to liver [None]
  - Metastases to peritoneum [None]
  - Hepatic vein dilatation [None]

NARRATIVE: CASE EVENT DATE: 20220409
